FAERS Safety Report 9497076 (Version 3)
Quarter: 2014Q2

REPORT INFORMATION
  Report Type: Spontaneous
  Country: US (occurrence: US)
  Receive Date: 20130904
  Receipt Date: 20140523
  Transmission Date: 20141212
  Serious: Yes (Hospitalization)
  Sender: FDA-Public Use
  Company Number: US-BAYER-2013-105594

PATIENT
  Age: 23 Year
  Sex: Female
  Weight: 82.54 kg

DRUGS (2)
  1. MIRENA [Suspect]
     Indication: CONTRACEPTION
     Dosage: 20 MCG/24HR, CONT
     Route: 015
     Dates: start: 20090228, end: 20100722
  2. KEFLEX [Concomitant]
     Indication: TOOTH INFECTION

REACTIONS (8)
  - Uterine perforation [None]
  - Injury [None]
  - Medical device pain [None]
  - Abdominal pain upper [None]
  - Infection [None]
  - Device dislocation [None]
  - Device issue [None]
  - Infertility [None]
